FAERS Safety Report 11428455 (Version 1)
Quarter: 2015Q3

REPORT INFORMATION
  Report Type: Spontaneous
  Country: US (occurrence: US)
  Receive Date: 20150828
  Receipt Date: 20150828
  Transmission Date: 20151125
  Serious: No
  Sender: FDA-Public Use
  Company Number: US-ROCHE-1249062

PATIENT
  Sex: Female

DRUGS (2)
  1. RIBAVIRIN. [Suspect]
     Active Substance: RIBAVIRIN
     Indication: CHRONIC HEPATITIS C
     Dosage: 600/400
     Route: 065
     Dates: start: 20130417
  2. PEGASYS [Suspect]
     Active Substance: PEGINTERFERON ALFA-2A
     Indication: CHRONIC HEPATITIS C
     Route: 058
     Dates: start: 20130417, end: 20130703

REACTIONS (8)
  - Diarrhoea [Recovered/Resolved]
  - Gastric disorder [Unknown]
  - Weight decreased [Unknown]
  - Cough [Unknown]
  - Asthenia [Unknown]
  - Myalgia [Unknown]
  - Malaise [Unknown]
  - Hypophagia [Unknown]
